FAERS Safety Report 6724871-9 (Version None)
Quarter: 2010Q2

REPORT INFORMATION
  Report Type: 
  Country: None (occurrence: None)
  Receive Date: 20100513
  Receipt Date: 20100513
  Transmission Date: 20101027
  Serious: Yes (Other)
  Sender: FDA-Public Use
  Company Number: None

PATIENT
  Age: 35 Year
  Sex: Female
  Weight: 88.4514 kg

DRUGS (2)
  1. LEVOTHYROXINE SODIUM [Suspect]
     Indication: HYPOTHYROIDISM
     Dosage: 50MCG TAB DAILY PO
     Route: 048
     Dates: start: 20100302
  2. LEVOTHYROXINE SODIUM [Suspect]
     Indication: HYPOTHYROIDISM
     Dosage: 50MCG TAB DAILY PO
     Route: 048
     Dates: start: 20100312

REACTIONS (4)
  - DISEASE RECURRENCE [None]
  - HEADACHE [None]
  - HYPOTHYROIDISM [None]
  - PRODUCT QUALITY ISSUE [None]
